FAERS Safety Report 18867757 (Version 5)
Quarter: 2021Q2

REPORT INFORMATION
  Report Type: Spontaneous
  Country: US (occurrence: US)
  Receive Date: 20210209
  Receipt Date: 20210601
  Transmission Date: 20210717
  Serious: Yes (Other)
  Sender: FDA-Public Use
  Company Number: US-CELGENEUS-USA-20210200246

PATIENT
  Sex: Female

DRUGS (5)
  1. GABAPENTIN. [Concomitant]
     Active Substance: GABAPENTIN
     Indication: BACK PAIN
     Dosage: 900 MILLIGRAM
     Route: 065
     Dates: start: 20201001
  2. ZEPOSIA [Suspect]
     Active Substance: OZANIMOD HYDROCHLORIDE
     Dosage: 0.92 MILLIGRAM
     Route: 048
     Dates: start: 2021
  3. BACLOFEN. [Concomitant]
     Active Substance: BACLOFEN
     Indication: BACK PAIN
     Dosage: 30 MILLIGRAM
     Route: 065
     Dates: start: 20201001
  4. ZEPOSIA [Suspect]
     Active Substance: OZANIMOD HYDROCHLORIDE
     Indication: MULTIPLE SCLEROSIS
     Dosage: 0.23 MILLIGRAM
     Route: 048
     Dates: start: 20210125
  5. GABAPENTIN. [Concomitant]
     Active Substance: GABAPENTIN
     Route: 065
     Dates: start: 20201001

REACTIONS (16)
  - Limb discomfort [Unknown]
  - Dysstasia [Unknown]
  - Lymphocyte count decreased [Unknown]
  - Impaired driving ability [Unknown]
  - Back pain [Unknown]
  - Urinary incontinence [Recovering/Resolving]
  - Stress [Unknown]
  - Anal incontinence [Recovered/Resolved]
  - Gait disturbance [Unknown]
  - White blood cell count decreased [Unknown]
  - Nerve root injury lumbar [Unknown]
  - Hepatic enzyme increased [Unknown]
  - Pain [Unknown]
  - Fatigue [Unknown]
  - Discomfort [Unknown]
  - Hemiparesis [Unknown]

NARRATIVE: CASE EVENT DATE: 2021
